FAERS Safety Report 7016060-8 (Version None)
Quarter: 2010Q3

REPORT INFORMATION
  Report Type: 
  Country: None (occurrence: None)
  Receive Date: 20100927
  Receipt Date: 20100713
  Transmission Date: 20110219
  Serious: No
  Sender: FDA-Public Use
  Company Number: US-ASTRAZENECA-2010SE30098

PATIENT
  Sex: Female

DRUGS (1)
  1. ARIMIDEX [Suspect]
     Route: 048
     Dates: start: 20100201, end: 20100625

REACTIONS (6)
  - BACK PAIN [None]
  - BLOOD URINE PRESENT [None]
  - FLATULENCE [None]
  - PELVIC PAIN [None]
  - POLYP [None]
  - VAGINAL HAEMORRHAGE [None]
